FAERS Safety Report 9562639 (Version 2)
Quarter: 2013Q3

REPORT INFORMATION
  Report Type: Spontaneous
  Country: US (occurrence: US)
  Receive Date: 20130927
  Receipt Date: 20130927
  Transmission Date: 20140515
  Serious: No
  Sender: FDA-Public Use
  Company Number: US-BAXTER-2013BAX036966

PATIENT
  Age: 38 Year
  Sex: Male

DRUGS (2)
  1. DIANEAL LOW CALCIUM [Suspect]
     Indication: PERITONEAL DIALYSIS
     Route: 033
     Dates: start: 200808
  2. TYLENOL [Concomitant]
     Indication: PAIN
     Route: 065

REACTIONS (3)
  - Neck pain [Recovered/Resolved]
  - Arthralgia [Recovered/Resolved]
  - Peritoneal dialysis complication [Unknown]
